FAERS Safety Report 9956942 (Version 1)
Quarter: 2014Q1

REPORT INFORMATION
  Report Type: Report from Study
  Country: US (occurrence: US)
  Receive Date: 20140304
  Receipt Date: 20140304
  Transmission Date: 20141002
  Serious: No
  Sender: FDA-Public Use
  Company Number: US-ABBVIE-13P-163-1096407-00

PATIENT
  Sex: Male
  Weight: 97.61 kg

DRUGS (3)
  1. HUMIRA [Suspect]
     Indication: CROHN^S DISEASE
     Route: 058
     Dates: start: 200801, end: 200801
  2. HUMIRA [Suspect]
     Route: 058
     Dates: start: 200802, end: 200802
  3. HUMIRA [Suspect]
     Dates: start: 200802

REACTIONS (1)
  - Upper respiratory tract infection [Recovered/Resolved]
